FAERS Safety Report 5359435-5 (Version None)
Quarter: 2007Q2

REPORT INFORMATION
  Report Type: 
  Country: None (occurrence: None)
  Receive Date: 20070615
  Receipt Date: 20070604
  Transmission Date: 20071010
  Serious: Yes (Other)
  Sender: FDA-Public Use
  Company Number: JP-PFIZER INC-2007037417

PATIENT
  Sex: Female
  Weight: 44.5 kg

DRUGS (10)
  1. UNASYN [Suspect]
     Dosage: DAILY DOSE:3MG-FREQ:FREQUENCY: BID
  2. MEDROL [Suspect]
     Dosage: DAILY DOSE:24MG-FREQ:FREQUENCY: TID
     Route: 048
     Dates: start: 20070502, end: 20070511
  3. RANDA [Suspect]
     Dosage: DAILY DOSE:80MG-FREQ:FREQUENCY: QD
     Dates: start: 20070427, end: 20070427
  4. SAXIZON [Suspect]
     Dosage: DAILY DOSE:300MG-FREQ:FREQUENCY: QD
     Route: 042
     Dates: start: 20070427, end: 20070427
  5. NORVASC [Concomitant]
     Route: 048
  6. ADETPHOS [Concomitant]
     Route: 048
  7. MERISLON [Concomitant]
     Route: 048
  8. LIPLE [Concomitant]
     Route: 042
     Dates: start: 20070430, end: 20070512
  9. PENTAZOCINE LACTATE [Concomitant]
     Route: 030
     Dates: start: 20070501, end: 20070501
  10. CALONAL [Concomitant]
     Route: 048
     Dates: start: 20070430, end: 20070514

REACTIONS (1)
  - BLOOD POTASSIUM DECREASED [None]
